FAERS Safety Report 21084408 (Version 2)
Quarter: 2022Q3

REPORT INFORMATION
  Report Type: Spontaneous
  Country: IT (occurrence: IT)
  Receive Date: 20220714
  Receipt Date: 20220801
  Transmission Date: 20221026
  Serious: Yes (Other)
  Sender: FDA-Public Use
  Company Number: IT-SA-SAC20220713001472

PATIENT
  Age: 18 Year
  Sex: Male

DRUGS (6)
  1. DUPILUMAB [Suspect]
     Active Substance: DUPILUMAB
     Indication: Dermatitis atopic
     Dosage: 600 MG, 1X
     Route: 058
     Dates: start: 202104
  2. DUPILUMAB [Suspect]
     Active Substance: DUPILUMAB
     Dosage: 300 MG, QOW
     Route: 058
     Dates: end: 20210422
  3. TACROLIMUS [Concomitant]
     Active Substance: TACROLIMUS
  4. CYCLOSPORINE [Concomitant]
     Active Substance: CYCLOSPORINE
     Dosage: 3MG/KG
  5. CYCLOSPORINE [Concomitant]
     Active Substance: CYCLOSPORINE
     Dosage: 3.5MG/KG
  6. MESALAMINE [Concomitant]
     Active Substance: MESALAMINE
     Dosage: 1200MG 1-0-1(BID)

REACTIONS (5)
  - Crohn^s disease [Not Recovered/Not Resolved]
  - Enteritis [Recovering/Resolving]
  - Gastrointestinal disorder [Recovering/Resolving]
  - Neutrophilia [Recovering/Resolving]
  - Eosinophilia [Recovering/Resolving]

NARRATIVE: CASE EVENT DATE: 20211101
